FAERS Safety Report 24241126 (Version 1)
Quarter: 2024Q3

REPORT INFORMATION
  Report Type: Report from Study
  Country: US (occurrence: US)
  Receive Date: 20240823
  Receipt Date: 20240823
  Transmission Date: 20241017
  Serious: No
  Sender: ACADIA PHARMACEUTICALS
  Company Number: US-ACADIA PHARMACEUTICALS INC.-ACA-2024-PIM-004223

PATIENT
  Age: 53 Year
  Sex: Female

DRUGS (12)
  1. NUPLAZID [Suspect]
     Active Substance: PIMAVANSERIN TARTRATE
     Indication: Parkinson^s disease
     Dosage: 34 MILLIGRAM, QD
     Route: 048
     Dates: start: 20210930
  2. AMANTADINE [Concomitant]
     Active Substance: AMANTADINE
     Dosage: 100 MILLIGRAM
  3. ATORVASTATIN [Concomitant]
     Active Substance: ATORVASTATIN
     Dosage: 20 MILLIGRAM
  4. BACLOFEN [Concomitant]
     Active Substance: BACLOFEN
     Dosage: 20 MILLIGRAM
  5. DROXIDOPA [Concomitant]
     Active Substance: DROXIDOPA
     Dosage: 100 MILLIGRAM
  6. ESCITALOPRAM [Concomitant]
     Active Substance: ESCITALOPRAM OXALATE
     Dosage: 20 MILLIGRAM
  7. Flonase spr [Concomitant]
     Dosage: 0.05%
  8. MORPHINE SULFATE [Concomitant]
     Active Substance: MORPHINE SULFATE
     Dosage: 15 MILLIGRAM
  9. PANTOPRAZOLE [Concomitant]
     Active Substance: PANTOPRAZOLE
     Dosage: 40 MILLIGRAM
  10. RASAGILINE [Concomitant]
     Active Substance: RASAGILINE\RASAGILINE MESYLATE
     Dosage: 1 MILLIGRAM
  11. RYTARY [Concomitant]
     Active Substance: CARBIDOPA\LEVODOPA
     Dosage: 195 MILLIGRAM
  12. TRIHEXYPHEN [Concomitant]
     Dosage: 2 MILLIGRAM

REACTIONS (1)
  - Product dose omission issue [Unknown]

NARRATIVE: CASE EVENT DATE: 20240731
